FAERS Safety Report 5319309-2 (Version None)
Quarter: 2007Q2

REPORT INFORMATION
  Report Type: 
  Country: None (occurrence: None)
  Receive Date: 20070508
  Receipt Date: 20070430
  Transmission Date: 20071010
  Serious: Yes (Other)
  Sender: FDA-Public Use
  Company Number: US-ELI_LILLY_AND_COMPANY-US200704006535

PATIENT
  Age: 76 Year
  Sex: Male
  Weight: 98.412 kg

DRUGS (9)
  1. BYETTA [Suspect]
     Indication: DIABETES MELLITUS NON-INSULIN-DEPENDENT
     Dosage: 5 UG, 2/D
     Route: 058
     Dates: start: 20070309, end: 20070405
  2. BYETTA [Suspect]
     Dosage: 10 UG, 2/D
     Route: 058
     Dates: start: 20070406
  3. INSULIN [Concomitant]
     Indication: DIABETES MELLITUS NON-INSULIN-DEPENDENT
     Dosage: 30 U, 2/D
     Route: 058
     Dates: end: 20070309
  4. INSULIN [Concomitant]
     Dosage: 15 U, 2/D
     Route: 058
     Dates: start: 20070401
  5. PLAVIX [Concomitant]
     Dosage: UNK, UNKNOWN
  6. COREG [Concomitant]
     Dosage: UNK, UNKNOWN
  7. GLIMEPIRIDE [Concomitant]
     Dosage: UNK, 2/D
     Route: 048
  8. ALLEGRA [Concomitant]
     Dosage: UNK, UNKNOWN
  9. LEVOTHROID [Concomitant]
     Dosage: UNK, UNKNOWN

REACTIONS (5)
  - BLOOD GLUCOSE INCREASED [None]
  - CONFUSIONAL STATE [None]
  - DIZZINESS [None]
  - SKIN CANCER [None]
  - WEIGHT DECREASED [None]
